FAERS Safety Report 10706281 (Version 2)
Quarter: 2015Q2

REPORT INFORMATION
  Report Type: Spontaneous
  Country: CH (occurrence: CH)
  Receive Date: 20150113
  Receipt Date: 20150612
  Transmission Date: 20150821
  Serious: Yes (Death, Other)
  Sender: FDA-Public Use
  Company Number: CH-RANBAXY-2014R1-91352

PATIENT
  Age: 40 Year
  Sex: Male

DRUGS (1)
  1. PARACETAMOL [Suspect]
     Active Substance: ACETAMINOPHEN
     Indication: ASTHMA
     Dosage: UNK
     Route: 065

REACTIONS (2)
  - Coma [Unknown]
  - Death [Fatal]
